FAERS Safety Report 5109012-6 (Version None)
Quarter: 2006Q3

REPORT INFORMATION
  Report Type: 
  Country: None (occurrence: None)
  Receive Date: 20060918
  Receipt Date: 20060901
  Transmission Date: 20061208
  Serious: Yes (Hospitalization)
  Sender: FDA-Public Use
  Company Number: ENT 2006-0123

PATIENT
  Age: 64 Year
  Sex: Female

DRUGS (8)
  1. COMTAN [Suspect]
     Indication: PARKINSON'S DISEASE
     Dosage: 300 MG (100 MG, 3 IN 1 D), ORAL
     Route: 048
  2. ALOSENN [Concomitant]
  3. LENDORMIN [Concomitant]
  4. HICEE [Concomitant]
  5. THYRADIN [Concomitant]
  6. NEODOPASOL [Concomitant]
  7. SIFROL [Concomitant]
  8. FP (SELEGILINE) [Concomitant]

REACTIONS (7)
  - ANOREXIA [None]
  - DISEASE PROGRESSION [None]
  - DRUG EFFECT DECREASED [None]
  - GAIT DISTURBANCE [None]
  - INSOMNIA [None]
  - ON AND OFF PHENOMENON [None]
  - PALPITATIONS [None]
